FAERS Safety Report 8834079 (Version 1)
Quarter: 2012Q4

REPORT INFORMATION
  Report Type: 
  Country: ES (occurrence: ES)
  Receive Date: 20121010
  Receipt Date: 20121010
  Transmission Date: 20130627
  Serious: Yes (Other)
  Sender: FDA-Public Use
  Company Number: ES-BAYER-2012-105048

PATIENT
  Age: 48 Year
  Sex: Male

DRUGS (3)
  1. ADIRO 100 [Suspect]
     Indication: ACUTE MYOCARDIAL INFARCTION
     Route: 048
     Dates: start: 201205
  2. CLOPIDOGREL [Concomitant]
     Indication: ACUTE MYOCARDIAL INFARCTION
     Route: 048
  3. DEPAKINE [Concomitant]
     Route: 048

REACTIONS (2)
  - Epistaxis [Unknown]
  - Medication error [Recovered/Resolved]
